FAERS Safety Report 7067631-4 (Version None)
Quarter: 2010Q4

REPORT INFORMATION
  Report Type: 
  Country: None (occurrence: None)
  Receive Date: 20101028
  Receipt Date: 20101019
  Transmission Date: 20110411
  Serious: Yes (Other)
  Sender: FDA-Public Use
  Company Number: FR-NOVOPROD-315852

PATIENT
  Age: 54 Year
  Sex: Male

DRUGS (6)
  1. ACTRAPID [Suspect]
     Indication: DIABETES MELLITUS
     Dosage: UNK
     Dates: start: 20071227
  2. EPIVIR [Suspect]
     Indication: PRODUCT USED FOR UNKNOWN INDICATION
     Dosage: 300 MG, QD
     Route: 048
     Dates: start: 20071027
  3. KALETRA                            /01506501/ [Suspect]
     Indication: PRODUCT USED FOR UNKNOWN INDICATION
     Dosage: UNK
     Route: 048
     Dates: start: 20040101
  4. INVIRASE                           /01288701/ [Suspect]
     Indication: PRODUCT USED FOR UNKNOWN INDICATION
     Dosage: UNK
     Route: 048
     Dates: start: 20051125
  5. BARACLUDE [Suspect]
     Indication: HEPATITIS B
     Dosage: UNK
     Dates: start: 20080301
  6. LANTUS [Suspect]
     Indication: PRODUCT USED FOR UNKNOWN INDICATION
     Dosage: 12 U, QD
     Route: 058
     Dates: start: 20071227

REACTIONS (1)
  - AGRANULOCYTOSIS [None]
